FAERS Safety Report 6640621-9 (Version None)
Quarter: 2010Q1

REPORT INFORMATION
  Report Type: 
  Country: None (occurrence: None)
  Receive Date: 20100318
  Receipt Date: 20100309
  Transmission Date: 20100710
  Serious: Yes (Hospitalization, Other)
  Sender: FDA-Public Use
  Company Number: FR-BRISTOL-MYERS SQUIBB COMPANY-15013295

PATIENT
  Age: 43 Year
  Sex: Female

DRUGS (2)
  1. ELISOR [Suspect]
     Dosage: 1 INTAKE
     Route: 048
     Dates: start: 20081016
  2. CRESTOR [Suspect]
     Dosage: 1 INTAKE
     Dates: end: 20081016

REACTIONS (5)
  - BLOOD CREATINE PHOSPHOKINASE INCREASED [None]
  - CHEST PAIN [None]
  - DECREASED APPETITE [None]
  - MYALGIA [None]
  - WEIGHT DECREASED [None]
